FAERS Safety Report 14151768 (Version 1)
Quarter: 2017Q4

REPORT INFORMATION
  Report Type: Spontaneous
  Country: US (occurrence: None)
  Receive Date: 20171101
  Receipt Date: 20171101
  Transmission Date: 20180321
  Serious: Yes (Hospitalization)
  Sender: FDA-Public Use
  Company Number: None

PATIENT
  Age: 57 Year
  Sex: Male

DRUGS (11)
  1. FISHOIL [Concomitant]
  2. CIALIS [Concomitant]
     Active Substance: TADALAFIL
  3. BUPROPN [Concomitant]
  4. HYDROCHLOROT [Concomitant]
     Active Substance: HYDROCHLOROTHIAZIDE
  5. QUINAPRIL. [Concomitant]
     Active Substance: QUINAPRIL
  6. ASPIRIN. [Concomitant]
     Active Substance: ASPIRIN
  7. HYDROCO [Concomitant]
  8. VITAMIN D3 [Concomitant]
     Active Substance: CHOLECALCIFEROL
  9. ATORVASTATIN [Concomitant]
     Active Substance: ATORVASTATIN
  10. NEULASTA [Suspect]
     Active Substance: PEGFILGRASTIM
     Indication: MALIGNANT CONNECTIVE TISSUE NEOPLASM
     Route: 058
     Dates: start: 20171014
  11. ZOLPIDEM [Concomitant]
     Active Substance: ZOLPIDEM\ZOLPIDEM TARTRATE

REACTIONS (1)
  - Hospitalisation [None]

NARRATIVE: CASE EVENT DATE: 201710
